FAERS Safety Report 9899177 (Version 3)
Quarter: 2015Q3

REPORT INFORMATION
  Report Type: Spontaneous
  Country: US (occurrence: US)
  Receive Date: 20140214
  Receipt Date: 20150810
  Transmission Date: 20151125
  Serious: No
  Sender: FDA-Public Use
  Company Number: US-GILEAD-2011-0045530

PATIENT
  Age: 41 Year
  Sex: Female

DRUGS (3)
  1. LETAIRIS [Suspect]
     Active Substance: AMBRISENTAN
     Indication: PULMONARY ARTERIAL HYPERTENSION
     Dosage: 10 MG, UNK
     Route: 048
     Dates: start: 20110622
  2. ADCIRCA [Concomitant]
     Active Substance: TADALAFIL
  3. EPOPROSTENOL SODIUM. [Concomitant]
     Active Substance: EPOPROSTENOL SODIUM

REACTIONS (2)
  - Erythema [Unknown]
  - Rash pruritic [Unknown]

NARRATIVE: CASE EVENT DATE: 201111
